FAERS Safety Report 6057100-2 (Version None)
Quarter: 2009Q1

REPORT INFORMATION
  Report Type: 
  Country: None (occurrence: None)
  Receive Date: 20090122
  Receipt Date: 20090122
  Transmission Date: 20090719
  Serious: Yes (Hospitalization)
  Sender: FDA-Public Use
  Company Number: None

PATIENT
  Age: 52 Year
  Sex: Male
  Weight: 153.2 kg

DRUGS (5)
  1. PAROXETINE HCL [Suspect]
     Indication: MAJOR DEPRESSION
     Dosage: 20 MG QD-ORAL
     Route: 048
     Dates: start: 20081113, end: 20090107
  2. MULTIVITAMIN/MULTIMINERAL SUPPLEMENT [Concomitant]
  3. EUCALYPTUS OIL/MENTHOL [Concomitant]
  4. ZOLPIDEM TARTRATE [Concomitant]
  5. RAMELTEON [Concomitant]

REACTIONS (4)
  - ATRIAL FIBRILLATION [None]
  - OEDEMA PERIPHERAL [None]
  - UPPER RESPIRATORY TRACT INFECTION [None]
  - WEIGHT INCREASED [None]
